FAERS Safety Report 6794730-4 (Version None)
Quarter: 2010Q2

REPORT INFORMATION
  Report Type: 
  Country: None (occurrence: None)
  Receive Date: 20100625
  Receipt Date: 20100616
  Transmission Date: 20101027
  Serious: Yes (Hospitalization, Other)
  Sender: FDA-Public Use
  Company Number: US-SANOFI-AVENTIS-200915408US

PATIENT
  Sex: Male

DRUGS (3)
  1. LANTUS [Suspect]
     Indication: TYPE 2 DIABETES MELLITUS
     Dosage: 4-6 UNITS
     Route: 058
     Dates: start: 20060101
  2. OPTICLICK [Suspect]
     Indication: TYPE 2 DIABETES MELLITUS
     Dosage: 4-6 UNITS
     Route: 058
     Dates: start: 20060101
  3. APIDRA [Suspect]
     Dosage: SLIDING SCALE
     Route: 058
     Dates: start: 20050101

REACTIONS (6)
  - BRADYCARDIA [None]
  - DECUBITUS ULCER [None]
  - DIPLEGIA [None]
  - GAIT DISTURBANCE [None]
  - PNEUMONIA [None]
  - RENAL FAILURE [None]
